FAERS Safety Report 4982928-7 (Version None)
Quarter: 2006Q2

REPORT INFORMATION
  Report Type: 
  Country: None (occurrence: None)
  Receive Date: 20060420
  Receipt Date: 20060411
  Transmission Date: 20061013
  Serious: Yes (Other)
  Sender: FDA-Public Use
  Company Number: 163-21880-06030352

PATIENT
  Age: 80 Year
  Sex: Female

DRUGS (1)
  1. REVLIMID [Suspect]
     Indication: MYELODYSPLASTIC SYNDROME
     Dosage: 10 MG, DAILY, ORAL
     Route: 048
     Dates: start: 20060124, end: 20060101

REACTIONS (6)
  - CEREBRAL HAEMORRHAGE [None]
  - CYSTITIS [None]
  - DIARRHOEA [None]
  - PHLEBITIS [None]
  - RASH [None]
  - THROMBOCYTOPENIA [None]
